FAERS Safety Report 19655274 (Version 1)
Quarter: 2021Q3

REPORT INFORMATION
  Report Type: Spontaneous
  Country: US (occurrence: US)
  Receive Date: 20210803
  Receipt Date: 20210803
  Transmission Date: 20211014
  Serious: Yes (Other)
  Sender: FDA-Public Use
  Company Number: None

PATIENT
  Age: 56 Year
  Sex: Male

DRUGS (4)
  1. CLONOZAPAM [Concomitant]
     Active Substance: CLONAZEPAM
  2. KETAMINE [Suspect]
     Active Substance: KETAMINE
  3. BUPROPION. [Concomitant]
     Active Substance: BUPROPION
  4. QUETIAPINE FUMARATE. [Concomitant]
     Active Substance: QUETIAPINE FUMARATE

REACTIONS (5)
  - Condition aggravated [None]
  - Nausea [None]
  - Infusion related reaction [None]
  - Stress [None]
  - Pain [None]

NARRATIVE: CASE EVENT DATE: 20210801
